FAERS Safety Report 24634674 (Version 1)
Quarter: 2024Q4

REPORT INFORMATION
  Report Type: Spontaneous
  Country: CN (occurrence: CN)
  Receive Date: 20241119
  Receipt Date: 20241119
  Transmission Date: 20250115
  Serious: Yes (Hospitalization, Other)
  Sender: SANOFI AVENTIS
  Company Number: CN-SA-2024SA329033

PATIENT
  Age: 68 Year
  Sex: Male
  Weight: 60 kg

DRUGS (4)
  1. TAXOTERE [Suspect]
     Active Substance: DOCETAXEL
     Indication: Prostate cancer
     Dosage: 100 MG, 1X
     Route: 041
     Dates: start: 20241027, end: 20241027
  2. SODIUM CHLORIDE [Concomitant]
     Active Substance: SODIUM CHLORIDE
     Indication: Prostate cancer
     Dosage: 250 ML, 1X
     Route: 041
     Dates: start: 20241027, end: 20241027
  3. SODIUM CHLORIDE [Concomitant]
     Active Substance: SODIUM CHLORIDE
     Indication: Prophylaxis
     Dosage: 100 ML, 1X
     Route: 041
     Dates: start: 20241027, end: 20241027
  4. TROPISETRON HYDROCHLORIDE [Concomitant]
     Active Substance: TROPISETRON HYDROCHLORIDE
     Indication: Prophylaxis
     Dosage: 5 MG, 1X
     Route: 041
     Dates: start: 20241027, end: 20241027

REACTIONS (7)
  - Abdominal discomfort [Recovering/Resolving]
  - Limb discomfort [Recovering/Resolving]
  - Regurgitation [Recovering/Resolving]
  - Epigastric discomfort [Recovering/Resolving]
  - Nausea [Recovering/Resolving]
  - Asthenia [Recovering/Resolving]
  - Myelosuppression [Recovering/Resolving]

NARRATIVE: CASE EVENT DATE: 20241028
